FAERS Safety Report 8141595-4 (Version None)
Quarter: 2012Q1

REPORT INFORMATION
  Report Type: 
  Country: None (occurrence: None)
  Receive Date: 20120103
  Receipt Date: 20111111
  Transmission Date: 20120608
  Serious: No
  Sender: FDA-Public Use
  Company Number: AE-2011-002629

PATIENT
  Age: 30 Year
  Sex: Male
  Weight: 92.9874 kg

DRUGS (5)
  1. INCIVEK [Suspect]
     Dosage: 2250 MG (750 MG,1 IN 8 HR)
     Dates: start: 20110918
  2. PEGASYS [Concomitant]
  3. RIBAVIRIN [Concomitant]
  4. ALPRAZOLAM [Concomitant]
  5. HEPATITIS A VACCINE (HEPATITIS A VACCINE) [Concomitant]

REACTIONS (10)
  - PYREXIA [None]
  - HAEMORRHOIDS [None]
  - WEIGHT DECREASED [None]
  - IRRITABILITY [None]
  - DIARRHOEA [None]
  - ANORECTAL DISCOMFORT [None]
  - ANAL PRURITUS [None]
  - VOMITING [None]
  - DECREASED APPETITE [None]
  - ASTHENIA [None]
